FAERS Safety Report 6818389-2 (Version None)
Quarter: 2010Q3

REPORT INFORMATION
  Report Type: 
  Country: None (occurrence: None)
  Receive Date: 20100706
  Receipt Date: 20080215
  Transmission Date: 20110219
  Serious: No
  Sender: FDA-Public Use
  Company Number: US-PFIZER INC-2008015472

PATIENT
  Sex: Female
  Weight: 50.9 kg

DRUGS (2)
  1. ZITHROMAX [Suspect]
     Indication: SINUS DISORDER
     Dates: start: 20080211
  2. ZITHROMAX [Suspect]
     Indication: PHARYNGITIS

REACTIONS (2)
  - ABDOMINAL DISCOMFORT [None]
  - HEADACHE [None]
